FAERS Safety Report 20252586 (Version 3)
Quarter: 2022Q1

REPORT INFORMATION
  Report Type: Spontaneous
  Country: CA (occurrence: CA)
  Receive Date: 20211229
  Receipt Date: 20220124
  Transmission Date: 20220423
  Serious: No
  Sender: FDA-Public Use
  Company Number: CA-JNJFOC-20211218367

PATIENT
  Age: 17 Year
  Sex: Female

DRUGS (1)
  1. SIMPONI [Suspect]
     Active Substance: GOLIMUMAB
     Indication: Colitis ulcerative
     Dosage: STRENGTH : 100.00 MG/ML
     Route: 058
     Dates: start: 20200313

REACTIONS (7)
  - Pain [Unknown]
  - Device deployment issue [Unknown]
  - Underdose [Unknown]
  - Product use issue [Unknown]
  - Off label use [Unknown]
  - Mental disorder [Not Recovered/Not Resolved]
  - Needle issue [Unknown]
